FAERS Safety Report 4640711-6 (Version None)
Quarter: 2005Q2

REPORT INFORMATION
  Report Type: 
  Country: None (occurrence: None)
  Receive Date: 20050419
  Receipt Date: 20050221
  Transmission Date: 20051028
  Serious: Yes (Other)
  Sender: FDA-Public Use
  Company Number: 805#1#2005-00007

PATIENT
  Age: 11 Day
  Sex: Female

DRUGS (21)
  1. ALPROSTADIL [Suspect]
     Indication: HEART DISEASE CONGENITAL
     Dosage: SEE IMAGE
     Route: 041
     Dates: start: 20041130, end: 20041201
  2. ALPROSTADIL [Suspect]
     Indication: HEART DISEASE CONGENITAL
     Dosage: SEE IMAGE
     Route: 041
     Dates: start: 20041201, end: 20041202
  3. ALPROSTADIL [Suspect]
     Indication: HEART DISEASE CONGENITAL
     Dosage: SEE IMAGE
     Route: 041
     Dates: start: 20041203, end: 20041203
  4. ALPROSTADIL [Suspect]
     Indication: HEART DISEASE CONGENITAL
     Dosage: SEE IMAGE
     Route: 041
     Dates: start: 20041202, end: 20041203
  5. ALPROSTADIL [Suspect]
     Indication: HEART DISEASE CONGENITAL
     Dosage: SEE IMAGE
     Route: 041
     Dates: start: 20041203, end: 20041206
  6. CARTEOLOL-HYDROCHLORIDE (CARTEOLOL HYDROCHLRIDE) [Concomitant]
  7. PETHIDINE-HYDROCHLORIDE/LEVALLORHAN-TARTRATE (LEVALLORPHAN TARTRATE, P [Concomitant]
  8. PENTAZOCINE-HYDROCHLORIDE (PENTAZOCINE) [Concomitant]
  9. FENTANYL CITRATE [Concomitant]
  10. VECURONIUM BROMIDE [Concomitant]
  11. NOREPINEPHRINE (NOREPINEPHRINE) [Concomitant]
  12. ALBUMIN (HUMAN) [Concomitant]
  13. HEPARIN SODIUM [Concomitant]
  14. CEFAZOLIN SODIUM [Concomitant]
  15. IOPAMIDOL [Concomitant]
  16. PROPRNOLOL-HYDROCHLORIDE (PROPRANOLOL HYDROCHLORIDE) [Concomitant]
  17. POTASSIUM CHLORIDE [Concomitant]
  18. THIOPENTAL SODIUM [Concomitant]
  19. FAMOTIDINE [Concomitant]
  20. MIDAZOLAM HCL [Concomitant]
  21. APROSTADIL [Concomitant]

REACTIONS (2)
  - NEONATAL APNOEIC ATTACK [None]
  - OEDEMA NEONATAL [None]
